FAERS Safety Report 6729178-1 (Version None)
Quarter: 2010Q2

REPORT INFORMATION
  Report Type: 
  Country: None (occurrence: None)
  Receive Date: 20100517
  Receipt Date: 20100422
  Transmission Date: 20101027
  Serious: No
  Sender: FDA-Public Use
  Company Number: US-ABBOTT-10P-163-0640335-00

PATIENT
  Sex: Female

DRUGS (5)
  1. SIMCOR [Suspect]
     Indication: BLOOD CHOLESTEROL INCREASED
     Dosage: 1-500/20MG TABLET NIGHTLY
     Route: 048
     Dates: start: 20100401
  2. NIASPAN [Suspect]
     Indication: DRUG USE FOR UNKNOWN INDICATION
     Dosage: 500MG NIGHTLY
  3. CO Q10 [Concomitant]
     Indication: DRUG USE FOR UNKNOWN INDICATION
  4. MANY OTHER VITAMINS WHICH PATIENT CHANGES DEPENDING ON CURRENT NEED [Concomitant]
     Indication: DRUG USE FOR UNKNOWN INDICATION
  5. METAMUCIL-2 [Concomitant]
     Indication: DRUG USE FOR UNKNOWN INDICATION
     Dosage: TAKES WITH NIASPAN DOSE

REACTIONS (1)
  - FLUSHING [None]
